FAERS Safety Report 7383219-X (Version None)
Quarter: 2011Q1

REPORT INFORMATION
  Report Type: 
  Country: None (occurrence: None)
  Receive Date: 20110330
  Receipt Date: 20110322
  Transmission Date: 20110831
  Serious: Yes (Hospitalization)
  Sender: FDA-Public Use
  Company Number: US-US-EMD SERONO, INC.-231503J10USA

PATIENT
  Sex: Female

DRUGS (3)
  1. REBIF [Suspect]
     Indication: MULTIPLE SCLEROSIS
     Route: 058
     Dates: start: 20090217
  2. LEXAPRO [Concomitant]
     Route: 065
  3. RITALIN [Concomitant]
     Route: 065

REACTIONS (2)
  - CARPAL TUNNEL SYNDROME [None]
  - SPINAL FUSION SURGERY [None]
